FAERS Safety Report 4525946-5 (Version None)
Quarter: 2004Q4

REPORT INFORMATION
  Report Type: 
  Country: None (occurrence: None)
  Receive Date: 20041124
  Receipt Date: 20040924
  Transmission Date: 20050328
  Serious: Yes (Other)
  Sender: FDA-Public Use
  Company Number: 2004051961

PATIENT
  Age: 50 Year
  Sex: Male
  Weight: 84.369 kg

DRUGS (11)
  1. TIKOSYN [Suspect]
     Indication: ATRIAL FIBRILLATION
     Dosage: 1000 MCG (500 MCG, 2 IN 1 D), ORAL
     Route: 048
     Dates: start: 20040701
  2. METOPROLOL SUCCINATE [Concomitant]
  3. QUINAPRIL HCL [Concomitant]
  4. ATORVASTATIN (ATORVASTATIN) [Concomitant]
  5. PANTOPRAZOLE (PANTOPRAZOLE) [Concomitant]
  6. LEVOTHYROXINE SODIUM [Concomitant]
  7. FUROSEMIDE [Concomitant]
  8. WARFARIN SODIUM [Concomitant]
  9. ALPRAZOLAM [Concomitant]
  10. NITROGLYCERIN [Concomitant]
  11. FUROSEMIDE [Concomitant]

REACTIONS (2)
  - ATRIAL FIBRILLATION [None]
  - CHEST DISCOMFORT [None]
